FAERS Safety Report 17865831 (Version 5)
Quarter: 2022Q3

REPORT INFORMATION
  Report Type: Spontaneous
  Country: US (occurrence: US)
  Receive Date: 20200605
  Receipt Date: 20220906
  Transmission Date: 20221026
  Serious: Yes (Other)
  Sender: FDA-Public Use
  Company Number: US-PFIZER INC-2019420633

PATIENT
  Age: 25 Year
  Sex: Female
  Weight: 54.43 kg

DRUGS (3)
  1. XELJANZ [Suspect]
     Active Substance: TOFACITINIB CITRATE
     Indication: Colitis ulcerative
     Dosage: 10 MG, 2X/DAY
     Route: 048
     Dates: start: 2018
  2. XELJANZ [Suspect]
     Active Substance: TOFACITINIB CITRATE
     Dosage: 5 MG, 2X/DAY
     Route: 048
     Dates: start: 2019
  3. XELJANZ [Suspect]
     Active Substance: TOFACITINIB CITRATE
     Dosage: 10 MG, 2X/DAY
     Route: 048
     Dates: end: 2022

REACTIONS (5)
  - Haematochezia [Not Recovered/Not Resolved]
  - Condition aggravated [Unknown]
  - Mucous stools [Not Recovered/Not Resolved]
  - Eating disorder [Not Recovered/Not Resolved]
  - Blood phosphorus increased [Unknown]
